FAERS Safety Report 7764889-0 (Version None)
Quarter: 2011Q3

REPORT INFORMATION
  Report Type: 
  Country: None (occurrence: None)
  Receive Date: 20110919
  Receipt Date: 20110909
  Transmission Date: 20111222
  Serious: Yes (Other)
  Sender: FDA-Public Use
  Company Number: 2011SP042754

PATIENT
  Age: 58 Year
  Sex: Male

DRUGS (4)
  1. RIBAVIRIN [Suspect]
     Indication: HEPATITIS
  2. IRON [Concomitant]
  3. VICTRELIS [Suspect]
     Indication: HEPATITIS
     Dosage: 800 MG, TID, PO
     Route: 048
     Dates: start: 20110801
  4. PEGASYS [Suspect]
     Indication: HEPATITIS

REACTIONS (9)
  - RED BLOOD CELL COUNT DECREASED [None]
  - EOSINOPHIL COUNT DECREASED [None]
  - HAEMOGLOBIN DECREASED [None]
  - PLATELET COUNT DECREASED [None]
  - WHITE BLOOD CELL COUNT DECREASED [None]
  - COAGULOPATHY [None]
  - NAUSEA [None]
  - HAEMATOCRIT DECREASED [None]
  - VOMITING [None]
